FAERS Safety Report 8362291 (Version 2)
Quarter: 2015Q1

REPORT INFORMATION
  Report Type: Report from Study
  Country: US (occurrence: US)
  Receive Date: 20120130
  Receipt Date: 20150222
  Transmission Date: 20150721
  Serious: Yes (Death)
  Sender: FDA-Public Use
  Company Number: US-ROCHE-1034217

PATIENT
  Sex: Female
  Weight: 62.65 kg

DRUGS (9)
  1. ATIVAN [Concomitant]
     Active Substance: LORAZEPAM
     Dosage: 300
     Route: 042
     Dates: start: 20070418
  2. GEMZAR [Concomitant]
     Active Substance: GEMCITABINE HYDROCHLORIDE
     Dosage: 100
     Route: 042
  3. REGLAN [Concomitant]
     Active Substance: METOCLOPRAMIDE HYDROCHLORIDE
     Route: 042
  4. ARANESP [Concomitant]
     Active Substance: DARBEPOETIN ALFA
     Dosage: 300
     Route: 042
     Dates: start: 20070418
  5. NEULASTA [Concomitant]
     Active Substance: PEGFILGRASTIM
     Route: 065
  6. ARANESP [Concomitant]
     Active Substance: DARBEPOETIN ALFA
     Dosage: 200
     Route: 065
     Dates: start: 200703
  7. NEULASTA [Concomitant]
     Active Substance: PEGFILGRASTIM
     Dosage: 300
     Route: 042
     Dates: start: 20070418
  8. ATIVAN [Concomitant]
     Active Substance: LORAZEPAM
     Route: 065
  9. AVASTIN [Suspect]
     Active Substance: BEVACIZUMAB
     Indication: OVARIAN CANCER
     Route: 042
     Dates: start: 20070328

REACTIONS (2)
  - Death [Fatal]
  - Off label use [Unknown]
